FAERS Safety Report 7217294-X (Version None)
Quarter: 2010Q4

REPORT INFORMATION
  Report Type: 
  Country: None (occurrence: None)
  Receive Date: 20101230
  Receipt Date: 20101220
  Transmission Date: 20110411
  Serious: Yes (Other)
  Sender: FDA-Public Use
  Company Number: 2010SP065514

PATIENT
  Age: 54 Year
  Sex: Female

DRUGS (5)
  1. NASONEX [Suspect]
     Indication: UPPER-AIRWAY COUGH SYNDROME
  2. FLONASE [Suspect]
     Indication: UPPER-AIRWAY COUGH SYNDROME
     Dosage: 2 DF;QD;NAS
     Route: 045
     Dates: start: 20100501, end: 20101129
  3. LYRICA [Concomitant]
  4. LISINOPRIL [Concomitant]
  5. HYDROCHLOROTHIAZIDE [Concomitant]

REACTIONS (4)
  - CHEST DISCOMFORT [None]
  - DRUG INEFFECTIVE [None]
  - HEADACHE [None]
  - PNEUMONIA [None]
